FAERS Safety Report 12178632 (Version 1)
Quarter: 2016Q1

REPORT INFORMATION
  Report Type: Spontaneous
  Country: PT (occurrence: PT)
  Receive Date: 20160315
  Receipt Date: 20160315
  Transmission Date: 20160526
  Serious: Yes (Hospitalization, Other)
  Sender: FDA-Public Use
  Company Number: PT-ASTRAZENECA-2016SE25515

PATIENT
  Age: 21705 Day
  Sex: Female

DRUGS (6)
  1. TEGRETOL [Concomitant]
     Active Substance: CARBAMAZEPINE
     Indication: DEPRESSION
     Route: 065
     Dates: start: 200911
  2. RIVOTRIL [Concomitant]
     Active Substance: CLONAZEPAM
     Indication: DEPRESSION
     Route: 065
     Dates: start: 200911
  3. MORFEX [Concomitant]
     Active Substance: FLURAZEPAM HYDROCHLORIDE
     Indication: DEPRESSION
     Route: 065
     Dates: start: 200911
  4. DUMYROX [Concomitant]
     Indication: DEPRESSION
     Route: 065
     Dates: start: 200911
  5. LIVIAL [Concomitant]
     Active Substance: TIBOLONE
     Indication: BLOOD OESTROGEN DECREASED
     Route: 065
     Dates: start: 2003
  6. NEXIUM [Suspect]
     Active Substance: ESOMEPRAZOLE MAGNESIUM
     Indication: GASTRITIS
     Route: 048
     Dates: start: 20100403, end: 20100416

REACTIONS (1)
  - Toxic skin eruption [Recovered/Resolved]

NARRATIVE: CASE EVENT DATE: 20100416
